FAERS Safety Report 16584106 (Version 1)
Quarter: 2019Q3

REPORT INFORMATION
  Report Type: Spontaneous
  Country: US (occurrence: US)
  Receive Date: 20190716
  Receipt Date: 20190716
  Transmission Date: 20191004
  Serious: Yes (Hospitalization, Disabling)
  Sender: FDA-Public Use
  Company Number: None

PATIENT
  Age: 89 Year
  Sex: Female
  Weight: 67.5 kg

DRUGS (1)
  1. EYLEA [Suspect]
     Active Substance: AFLIBERCEPT
     Indication: MACULAR DEGENERATION
     Dosage: ?          OTHER FREQUENCY:EVERY 2-3 MONTHS;?
     Route: 047

REACTIONS (4)
  - Blindness [None]
  - Eye infection [None]
  - Eye haemorrhage [None]
  - Eye pain [None]

NARRATIVE: CASE EVENT DATE: 20190605
